FAERS Safety Report 11362599 (Version 1)
Quarter: 2015Q3

REPORT INFORMATION
  Report Type: Other
  Country: FR (occurrence: FR)
  Receive Date: 20150810
  Receipt Date: 20150810
  Transmission Date: 20151125
  Serious: Yes (Other)
  Sender: FDA-Public Use
  Company Number: FR-MYLANLABS-2015M1025842

PATIENT

DRUGS (7)
  1. ETOPOSIDE MYLAN [Suspect]
     Active Substance: ETOPOSIDE
     Indication: METASTATIC MALIGNANT MELANOMA
     Dosage: UNK
     Dates: start: 20150616, end: 20150619
  2. PARACETAMOL [Concomitant]
     Active Substance: ACETAMINOPHEN
  3. ELUDRIL                            /00133002/ [Concomitant]
     Indication: PRODUCT USED FOR UNKNOWN INDICATION
  4. IFOSFAMIDE EG [Suspect]
     Active Substance: IFOSFAMIDE
     Indication: METASTATIC MALIGNANT MELANOMA
     Dosage: UNK
     Dates: start: 20150616, end: 20150619
  5. MYCOSTATINE [Concomitant]
  6. SODIUM BICARBONATE. [Concomitant]
     Active Substance: SODIUM BICARBONATE
     Indication: PRODUCT USED FOR UNKNOWN INDICATION
  7. ATARAX [Concomitant]
     Active Substance: HYDROXYZINE\HYDROXYZINE HYDROCHLORIDE
     Indication: PRODUCT USED FOR UNKNOWN INDICATION

REACTIONS (1)
  - Encephalopathy [Recovered/Resolved]

NARRATIVE: CASE EVENT DATE: 20150618
